FAERS Safety Report 5193695-9 (Version None)
Quarter: 2006Q4

REPORT INFORMATION
  Report Type: 
  Country: None (occurrence: None)
  Receive Date: 20061222
  Receipt Date: 20061221
  Transmission Date: 20070319
  Serious: Yes (Hospitalization)
  Sender: FDA-Public Use
  Company Number: 009454

PATIENT
  Age: 66 Year
  Sex: Female

DRUGS (9)
  1. TREXALL [Suspect]
     Indication: RHEUMATOID ARTHRITIS
     Dosage: 25 + 15 MG, 1/WEEK, ORAL- SEE IMAGE
     Route: 048
     Dates: start: 19880101, end: 20060701
  2. TREXALL [Suspect]
     Indication: RHEUMATOID ARTHRITIS
     Dosage: 25 + 15 MG, 1/WEEK, ORAL- SEE IMAGE
     Route: 048
     Dates: start: 20061009
  3. KINERET [Suspect]
     Indication: RHEUMATOID ARTHRITIS
     Dosage: 100 MG, QD, SUBCUTANEOUS
     Route: 058
     Dates: start: 20020601
  4. LEVOTHYROXINE SODIUM [Concomitant]
  5. FOLIC ACID [Concomitant]
  6. POTASSIUM (POTASSIUM) [Concomitant]
  7. ZOLPIDEM TARTRATE [Concomitant]
  8. MORPHINE [Concomitant]
  9. ACETAMINOPHEN [Concomitant]

REACTIONS (7)
  - ESCHERICHIA URINARY TRACT INFECTION [None]
  - HYDRONEPHROSIS [None]
  - PANCYTOPENIA [None]
  - PYELONEPHRITIS [None]
  - STAPHYLOCOCCAL SEPSIS [None]
  - STENT OCCLUSION [None]
  - UROSEPSIS [None]
